FAERS Safety Report 21188956 (Version 3)
Quarter: 2023Q1

REPORT INFORMATION
  Report Type: Spontaneous
  Country: CA (occurrence: None)
  Receive Date: 20220809
  Receipt Date: 20230119
  Transmission Date: 20230418
  Serious: Yes (Hospitalization)
  Sender: FDA-Public Use
  Company Number: CA-ROCHE-3149956

PATIENT
  Age: 50 Year
  Sex: Male

DRUGS (5)
  1. OCRELIZUMAB [Suspect]
     Active Substance: OCRELIZUMAB
     Indication: Primary progressive multiple sclerosis
     Route: 042
  2. VAXZEVRIA [Suspect]
     Active Substance: AZD-1222
     Indication: COVID-19 immunisation
     Dosage: 10 DOSES OF 0.5ML
     Route: 030
  3. ACETAMINOPHEN [Concomitant]
     Active Substance: ACETAMINOPHEN
  4. BACLOFEN [Concomitant]
     Active Substance: BACLOFEN
     Indication: Muscle spasms
  5. MELATONIN [Concomitant]
     Active Substance: MELATONIN

REACTIONS (6)
  - Fatigue [Recovered/Resolved]
  - Initial insomnia [Recovered/Resolved]
  - Limb immobilisation [Recovered/Resolved]
  - Poor quality sleep [Recovered/Resolved]
  - Pyrexia [Recovered/Resolved]
  - Sensory loss [Recovered/Resolved]
